FAERS Safety Report 9060032 (Version 2)
Quarter: 2014Q2

REPORT INFORMATION
  Report Type: Spontaneous
  Country: US (occurrence: US)
  Receive Date: 20130212
  Receipt Date: 20140411
  Transmission Date: 20141212
  Serious: Yes (Hospitalization)
  Sender: FDA-Public Use
  Company Number: US-BAYER-2013-018300

PATIENT
  Age: 28 Year
  Sex: Female

DRUGS (8)
  1. YAZ [Suspect]
  2. YASMIN [Suspect]
  3. CELEXA [Concomitant]
  4. ATIVAN [Concomitant]
  5. LEVAQUIN [Concomitant]
  6. AVELOX [Concomitant]
  7. VICODIN [Concomitant]
  8. Z-PAK [Concomitant]

REACTIONS (2)
  - Pulmonary embolism [Recovered/Resolved]
  - Injury [Recovered/Resolved]
